FAERS Safety Report 5947458-4 (Version None)
Quarter: 2008Q4

REPORT INFORMATION
  Report Type: 
  Country: None (occurrence: None)
  Receive Date: 20081110
  Receipt Date: 20081031
  Transmission Date: 20090506
  Serious: Yes (Other)
  Sender: FDA-Public Use
  Company Number: US-PFIZER INC-2008058294

PATIENT
  Sex: Male
  Weight: 105.7 kg

DRUGS (6)
  1. CHANTIX [Suspect]
     Indication: SMOKING CESSATION THERAPY
     Route: 048
     Dates: start: 20080603, end: 20080710
  2. CHANTIX [Suspect]
     Indication: TOBACCO ABUSE
  3. MOBIC [Concomitant]
  4. HYDROCHLOROTHIAZIDE [Concomitant]
  5. SYNTHROID [Concomitant]
  6. VITAMINS [Concomitant]

REACTIONS (4)
  - ABNORMAL DREAMS [None]
  - BLOOD TRIGLYCERIDES INCREASED [None]
  - HALLUCINATION [None]
  - NIGHTMARE [None]
